FAERS Safety Report 5709969-6 (Version None)
Quarter: 2008Q2

REPORT INFORMATION
  Report Type: 
  Country: None (occurrence: None)
  Receive Date: 20080418
  Receipt Date: 20070725
  Transmission Date: 20081010
  Serious: No
  Sender: FDA-Public Use
  Company Number: US-ASTRAZENECA-2007UW17956

PATIENT
  Sex: Female

DRUGS (6)
  1. TOPROL-XL [Suspect]
     Indication: TREMOR
     Dosage: 1/2 OF 25 MG TABLET
     Route: 048
     Dates: start: 20060401
  2. TOPROL-XL [Suspect]
     Indication: CARDIAC FIBRILLATION
     Dosage: 1/2 OF 25 MG TABLET
     Route: 048
     Dates: start: 20060401
  3. TOPROL-XL [Suspect]
     Indication: TACHYCARDIA
     Dosage: 1/2 OF 25 MG TABLET
     Route: 048
     Dates: start: 20060401
  4. BONIVA [Concomitant]
  5. ASPIRIN [Concomitant]
  6. LEVOTHYROXINE SODIUM [Concomitant]

REACTIONS (7)
  - AMNESIA [None]
  - CARDIAC DISORDER [None]
  - COLD SWEAT [None]
  - DIZZINESS [None]
  - FATIGUE [None]
  - OEDEMA PERIPHERAL [None]
  - SOMNOLENCE [None]
